FAERS Safety Report 6609868-1 (Version None)
Quarter: 2010Q1

REPORT INFORMATION
  Report Type: 
  Country: None (occurrence: None)
  Receive Date: 20100302
  Receipt Date: 20100222
  Transmission Date: 20100710
  Serious: Yes (Death, Hospitalization)
  Sender: FDA-Public Use
  Company Number: PHHY2010NZ04614

PATIENT
  Sex: Male

DRUGS (8)
  1. CLOZARIL [Suspect]
     Indication: SCHIZOPHRENIA
     Dosage: UNK
     Dates: start: 20010516
  2. FLIXOTIDE [Concomitant]
     Indication: ASTHMA
     Dosage: 120 DOSE, 2 TIMES/DAY
  3. LACTULOSE [Concomitant]
     Indication: CONSTIPATION
     Dosage: 10 GM/15 ML, 20 ONCE DAILY
  4. ZOPICLONE [Concomitant]
     Indication: SLEEP DISORDER
     Dosage: O,5 IN THE EVENING
  5. LAXSOL [Concomitant]
     Indication: CONSTIPATION
     Dosage: 2 UNK, BID
  6. COLECALCIFEROL [Concomitant]
     Indication: VITAMIN D DEFICIENCY
     Dosage: 1 ONCE PER MONTH
  7. ACQUOUS BP [Concomitant]
     Dosage: 500 MG, TID
  8. DL-ALPHA TOCOPHERYL ACETATE [Concomitant]
     Indication: VITAMIN E DEFICIENCY
     Dosage: 2 DF, BID

REACTIONS (7)
  - C-REACTIVE PROTEIN INCREASED [None]
  - DEMENTIA [None]
  - HAEMATOCRIT DECREASED [None]
  - HAEMOGLOBIN DECREASED [None]
  - LOWER RESPIRATORY TRACT INFECTION [None]
  - PNEUMONIA [None]
  - SEPSIS [None]
